FAERS Safety Report 24833486 (Version 2)
Quarter: 2025Q2

REPORT INFORMATION
  Report Type: Spontaneous
  Country: US (occurrence: US)
  Receive Date: 20250113
  Receipt Date: 20250404
  Transmission Date: 20250717
  Serious: Yes (Other)
  Sender: MERZ
  Company Number: US-Merz Pharmaceuticals GmbH-2025010000028

PATIENT

DRUGS (3)
  1. XEOMIN [Suspect]
     Active Substance: INCOBOTULINUMTOXINA
     Indication: Skin wrinkling
     Dosage: 36 INTERNATIONAL UNIT
     Route: 030
     Dates: start: 20230309, end: 20230309
  2. XEOMIN [Suspect]
     Active Substance: INCOBOTULINUMTOXINA
     Indication: Skin cosmetic procedure
     Dosage: 40 INTERNATIONAL UNIT
     Route: 030
     Dates: start: 20230710, end: 20230710
  3. XEOMIN [Suspect]
     Active Substance: INCOBOTULINUMTOXINA
     Indication: Skin cosmetic procedure

REACTIONS (8)
  - Paralysis [Recovered/Resolved]
  - Arthralgia [Unknown]
  - Migraine [Recovered/Resolved]
  - Toxicity to various agents [Recovered/Resolved]
  - Neurological symptom [Recovered/Resolved]
  - Sunburn [Recovered/Resolved]
  - Injection site pain [Recovered/Resolved]
  - Product preparation issue [Unknown]

NARRATIVE: CASE EVENT DATE: 20230101
